FAERS Safety Report 7288532-2 (Version None)
Quarter: 2011Q1

REPORT INFORMATION
  Report Type: 
  Country: None (occurrence: None)
  Receive Date: 20110207
  Receipt Date: 20110207
  Transmission Date: 20110831
  Serious: Yes (Other)
  Sender: FDA-Public Use
  Company Number: None

PATIENT
  Age: 68 Year
  Sex: Female
  Weight: 65.7716 kg

DRUGS (1)
  1. FOSAMAX [Suspect]
     Dosage: 10MG ONCE A WEEK PO
     Route: 048

REACTIONS (1)
  - BONE PAIN [None]
